FAERS Safety Report 25184670 (Version 1)
Quarter: 2025Q2

REPORT INFORMATION
  Report Type: Spontaneous
  Country: US (occurrence: None)
  Receive Date: 20250409
  Receipt Date: 20250409
  Transmission Date: 20250716
  Serious: No
  Sender: FDA-CTU
  Company Number: None

PATIENT
  Age: 36 Year
  Sex: Female
  Weight: 58.5 kg

DRUGS (5)
  1. SUBOXONE [Suspect]
     Active Substance: BUPRENORPHINE HYDROCHLORIDE\NALOXONE HYDROCHLORIDE
     Indication: Drug use disorder
     Dosage: 56 FILMS TWICE A DAY SUBLINGUAL
     Route: 060
     Dates: start: 20250407
  2. SUBOXONE [Suspect]
     Active Substance: BUPRENORPHINE HYDROCHLORIDE\NALOXONE HYDROCHLORIDE
     Indication: Drug dependence
  3. GABAPENTIN [Suspect]
     Active Substance: GABAPENTIN
  4. ADDERALL XR [Concomitant]
     Active Substance: AMPHETAMINE ASPARTATE\AMPHETAMINE SULFATE\DEXTROAMPHETAMINE SACCHARATE\DEXTROAMPHETAMINE SULFATE
  5. IBUPROFEN [Concomitant]
     Active Substance: IBUPROFEN

REACTIONS (12)
  - Feeling abnormal [None]
  - Anxiety [None]
  - Hypertension [None]
  - Product physical issue [None]
  - Product use complaint [None]
  - Product packaging issue [None]
  - Suspected product tampering [None]
  - Panic attack [None]
  - Malaise [None]
  - Withdrawal syndrome [None]
  - Ocular discomfort [None]
  - Euphoric mood [None]

NARRATIVE: CASE EVENT DATE: 20250408
